FAERS Safety Report 5473946-3 (Version None)
Quarter: 2007Q4

REPORT INFORMATION
  Report Type: 
  Country: None (occurrence: None)
  Receive Date: 20071001
  Receipt Date: 20070919
  Transmission Date: 20080405
  Serious: Yes (Other)
  Sender: FDA-Public Use
  Company Number: US-PFIZER INC-2007080059

PATIENT

DRUGS (1)
  1. CHANTIX [Suspect]

REACTIONS (3)
  - FEELING ABNORMAL [None]
  - HEADACHE [None]
  - TREMOR [None]
